FAERS Safety Report 15574741 (Version 1)
Quarter: 2018Q4

REPORT INFORMATION
  Report Type: Spontaneous
  Country: SA (occurrence: SA)
  Receive Date: 20181101
  Receipt Date: 20181101
  Transmission Date: 20190205
  Serious: Yes (Hospitalization, Other)
  Sender: FDA-Public Use
  Company Number: SA-PFIZER INC-2018442526

PATIENT
  Age: 24 Year
  Sex: Male

DRUGS (2)
  1. CABERGOLINE. [Suspect]
     Active Substance: CABERGOLINE
     Indication: MACROPROLACTINAEMIA
     Dosage: 0.25 MG, 2X/WEEK
     Route: 048
  2. LEVOTHYROXINE. [Concomitant]
     Active Substance: LEVOTHYROXINE
     Indication: MACROPROLACTINAEMIA
     Dosage: 50 UG, 1X/DAY
     Route: 048

REACTIONS (4)
  - Meningitis [Recovered/Resolved]
  - Cerebrospinal fluid leakage [Recovered/Resolved]
  - Pneumocephalus [Recovered/Resolved]
  - Disease recurrence [Recovered/Resolved]
